FAERS Safety Report 20584084 (Version 1)
Quarter: 2022Q1

REPORT INFORMATION
  Report Type: Report from Study
  Country: US (occurrence: US)
  Receive Date: 20220311
  Receipt Date: 20220311
  Transmission Date: 20220423
  Serious: Yes (Other)
  Sender: FDA-Public Use
  Company Number: US-ABBVIE-22K-163-4312178-00

PATIENT
  Sex: Female

DRUGS (1)
  1. RINVOQ [Suspect]
     Active Substance: UPADACITINIB
     Indication: Rheumatoid arthritis
     Route: 048

REACTIONS (6)
  - Joint arthroplasty [Recovering/Resolving]
  - Cataract [Unknown]
  - Benign neoplasm [Unknown]
  - Synovectomy [Unknown]
  - Muscular weakness [Unknown]
  - Joint stiffness [Unknown]
